FAERS Safety Report 5128332-2 (Version None)
Quarter: 2006Q4

REPORT INFORMATION
  Report Type: 
  Country: None (occurrence: None)
  Receive Date: 20061011
  Receipt Date: 20061002
  Transmission Date: 20070319
  Serious: No
  Sender: FDA-Public Use
  Company Number: 2006-148493-NL

PATIENT
  Age: 19 Year
  Sex: Female

DRUGS (1)
  1. ETONOGESTREL [Suspect]
     Indication: CONTRACEPTION
     Dosage: DF SUBDERMAL
     Route: 059
     Dates: start: 20060201, end: 20060906

REACTIONS (4)
  - DEPRESSION [None]
  - MEDICAL DEVICE COMPLICATION [None]
  - MOOD SWINGS [None]
  - SUICIDAL IDEATION [None]
